FAERS Safety Report 4604005-7 (Version None)
Quarter: 2005Q1

REPORT INFORMATION
  Report Type: 
  Country: None (occurrence: None)
  Receive Date: 20050308
  Receipt Date: 20050223
  Transmission Date: 20050727
  Serious: No
  Sender: FDA-Public Use
  Company Number: 2005UW00083

PATIENT
  Age: 85 Year
  Sex: Male
  Weight: 83.9 kg

DRUGS (7)
  1. PULMICORT [Suspect]
     Indication: ASTHMA
     Dosage: 2 PUFF BID IH
     Route: 055
     Dates: start: 20040701
  2. PULMICORT [Suspect]
     Indication: COUGH
     Dosage: 2 PUFF BID IH
     Route: 055
     Dates: start: 20040701
  3. DIOVAN [Concomitant]
  4. PROBENECID [Concomitant]
  5. ZOCOR [Concomitant]
  6. ALBUTEROL [Concomitant]
  7. DIAZEPAM [Concomitant]

REACTIONS (2)
  - DYSPHAGIA [None]
  - VOCAL CORD PARALYSIS [None]
